FAERS Safety Report 12210905 (Version 1)
Quarter: 2016Q1

REPORT INFORMATION
  Report Type: Spontaneous
  Country: US (occurrence: None)
  Receive Date: 20160324
  Receipt Date: 20160324
  Transmission Date: 20160526
  Serious: Yes (Other)
  Sender: FDA-Public Use
  Company Number: None

PATIENT
  Sex: Female
  Weight: 61 kg

DRUGS (11)
  1. COENZYME Q10 [Concomitant]
     Active Substance: UBIDECARENONE
  2. ZINC PICOLINATE [Concomitant]
     Active Substance: ZINC PICOLINATE
  3. ESTRADIOL. [Concomitant]
     Active Substance: ESTRADIOL
  4. RESTASIS [Concomitant]
     Active Substance: CYCLOSPORINE
  5. NEUTROGENA HEALTHY SKIN FACE BROAD SPECTRUM SPF15 [Suspect]
     Active Substance: AVOBENZONE\OCTISALATE\OCTOCRYLENE\OXYBENZONE
     Indication: THERAPEUTIC SKIN CARE TOPICAL
     Dosage: LESS THAN DIME, 1XDAY, TOPIC
     Route: 061
     Dates: start: 20150628
  6. VITAMIN D3 [Concomitant]
     Active Substance: CHOLECALCIFEROL
  7. LYSINE [Concomitant]
     Active Substance: LYSINE
  8. CALCIUM [Concomitant]
     Active Substance: CALCIUM
  9. NEUTROGENA DEEP CLEAN GENTLE SCRUB [Suspect]
     Active Substance: COSMETICS
     Indication: THERAPEUTIC SKIN CARE TOPICAL
     Dosage: LESS THAN DIME,NIGHTLY, TOPI
     Route: 061
  10. SUNFLOWER LECITHIN [Concomitant]
  11. MEDROXYPROGESTERONE [Concomitant]
     Active Substance: MEDROXYPROGESTERONE

REACTIONS (5)
  - Lip swelling [None]
  - Angioedema [None]
  - Abnormal sensation in eye [None]
  - Pyrexia [None]
  - Paraesthesia oral [None]

NARRATIVE: CASE EVENT DATE: 20150628
